FAERS Safety Report 4288935-4 (Version None)
Quarter: 2004Q1

REPORT INFORMATION
  Report Type: 
  Country: None (occurrence: None)
  Receive Date: 20040209
  Receipt Date: 20040129
  Transmission Date: 20041129
  Serious: Yes (Hospitalization)
  Sender: FDA-Public Use
  Company Number: PHRM2004FR00708

PATIENT
  Age: 79 Year
  Sex: Male

DRUGS (6)
  1. FRACTAL [Suspect]
     Indication: LIPID METABOLISM DISORDER
     Dosage: 3 DF/DAY
     Route: 048
  2. CARDENSIEL [Concomitant]
     Indication: MYOCARDIAL ISCHAEMIA
     Dosage: 1.25 MG, QD
     Route: 048
  3. CORVASAL [Concomitant]
     Indication: MYOCARDIAL ISCHAEMIA
     Dosage: 4 MG, TID
     Route: 048
  4. NITROGLYCERIN [Concomitant]
     Indication: MYOCARDIAL ISCHAEMIA
     Dosage: 15 MG/DAY
     Route: 062
  5. LEVOTHYROX [Concomitant]
     Indication: HYPOTHYROIDISM
     Dosage: 125 A?G/DAY
     Route: 048
  6. LASILIX [Concomitant]
     Indication: MYOCARDIAL ISCHAEMIA
     Dosage: 125 MG/DAY
     Route: 048

REACTIONS (6)
  - DIFFICULTY IN WALKING [None]
  - LUNG DISORDER [None]
  - MYALGIA [None]
  - POLYARTERITIS NODOSA [None]
  - PYREXIA [None]
  - VASCULITIS [None]
